FAERS Safety Report 8415899-1 (Version None)
Quarter: 2012Q2

REPORT INFORMATION
  Report Type: 
  Country: None (occurrence: None)
  Receive Date: 20120606
  Receipt Date: 20120531
  Transmission Date: 20120825
  Serious: Yes (Hospitalization)
  Sender: FDA-Public Use
  Company Number: US-TEVA-340932USA

PATIENT
  Sex: Male
  Weight: 79.178 kg

DRUGS (16)
  1. ONDANSETRON [Concomitant]
     Dosage: DAY 1 PRIOR TO CHEMO
     Route: 042
  2. LORAZEPAM [Concomitant]
     Indication: ANXIETY
     Dosage: BID
     Route: 048
  3. DEXAMETHASONE [Concomitant]
     Dosage: DAY 1 AND 2 PRE CHEMO
     Route: 042
  4. APREPITANT [Concomitant]
     Dosage: DAY 1 PRIOR TO CHEMO
     Route: 042
  5. TUSSIONEX [Concomitant]
     Dosage: 8 MG-10 MG/5 ML EXTENDED RELEASE
     Route: 048
  6. IRINOTECAN HCL [Concomitant]
     Dosage: EVERY 3 WKS, GIVEN DAY 1 EVERY 21 DAYS
     Route: 042
  7. ZOLPIDEM TARTRATE [Concomitant]
     Indication: INSOMNIA
     Dosage: NIGHTLY
     Route: 048
  8. PALONOSETRON HYDROCHLORIDE [Concomitant]
     Dosage: 0.25MG/5ML- 30 MINS.PRIOR TO CHEMO
     Route: 042
  9. LORAZEPAM [Concomitant]
     Dosage: PRIOR TO CHEMO
     Route: 042
  10. FLUCONAZOLE [Concomitant]
     Dosage: 400 MILLIGRAM;
     Route: 048
  11. LORATADINE [Concomitant]
     Indication: PAIN
     Dosage: 5/500-EVERY 6 HOURS
     Route: 048
  12. ATROPINE [Concomitant]
     Indication: DIARRHOEA
     Dosage: 1 ML-DAY 1 AND DAY 2OF CHEMO
     Route: 042
  13. TREANDA [Suspect]
     Indication: SMALL CELL LUNG CANCER STAGE UNSPECIFIED
     Dates: start: 20120425, end: 20120516
  14. PEGFILGRASTIM [Concomitant]
     Dosage: 6 MG/0.06 ML- DAY 2 CHEMOTHERAPY
     Route: 058
  15. MEGESTROL ACETATE [Concomitant]
     Dosage: 625 MG/5 ML
     Route: 048
  16. PROMETHAZINE [Concomitant]
     Indication: NAUSEA
     Dosage: EVERY 6 HOURS
     Route: 048

REACTIONS (1)
  - COCCIDIOIDOMYCOSIS [None]
